FAERS Safety Report 6641199-6 (Version None)
Quarter: 2010Q1

REPORT INFORMATION
  Report Type: 
  Country: None (occurrence: None)
  Receive Date: 20100318
  Receipt Date: 20100309
  Transmission Date: 20100710
  Serious: Yes (Death, Life-Threatening)
  Sender: FDA-Public Use
  Company Number: PHHY2010JP15980

PATIENT
  Sex: Male

DRUGS (16)
  1. ZOLEDRONATE T29581+ [Suspect]
     Indication: MULTIPLE MYELOMA
     Dosage: 4 MG EVERY FOUR WEEKS
     Route: 041
     Dates: start: 20070611, end: 20070706
  2. ZOLEDRONATE T29581+ [Suspect]
     Dosage: 4 MG EVERY FIVE WEEKS
     Route: 041
     Dates: start: 20071003, end: 20071107
  3. MELPHALAN HYDROCHLORIDE [Suspect]
     Indication: MULTIPLE MYELOMA
     Route: 065
  4. RANIMUSTINE [Suspect]
     Indication: MULTIPLE MYELOMA
     Route: 065
  5. CYCLOPHOSPHAMIDE [Suspect]
     Indication: MULTIPLE MYELOMA
     Route: 065
  6. PREDNISOLONE [Suspect]
     Indication: MULTIPLE MYELOMA
     Route: 065
  7. ALLOPURINOL [Concomitant]
     Dosage: 200 MG, UNK
     Route: 048
     Dates: end: 20070928
  8. DIFLUCAN [Concomitant]
     Dosage: 100 MG, UNK
     Route: 048
     Dates: end: 20080427
  9. SULFAMETHOXAZOLE AND TRIMETHOPRIM [Concomitant]
     Dosage: 100 MG, UNK
     Route: 048
     Dates: end: 20080427
  10. ZANTAC [Concomitant]
     Dosage: 300 MG, UNK
     Route: 048
     Dates: end: 20080527
  11. MUCOSTA [Concomitant]
     Dosage: 300 MG, UNK
     Route: 048
     Dates: end: 20080527
  12. MAXIPIME [Concomitant]
     Dosage: 2 G, UNK
     Route: 065
     Dates: start: 20070617, end: 20070620
  13. VELCADE [Concomitant]
     Indication: MULTIPLE MYELOMA
     Dosage: 1.60 MG, UNK
     Route: 065
     Dates: start: 20071018, end: 20071221
  14. DECADRON [Concomitant]
     Indication: MULTIPLE MYELOMA
     Dosage: 20 MG, UNK
     Route: 065
     Dates: start: 20071018, end: 20071221
  15. DAUNOMYCIN [Concomitant]
     Dosage: 40 MG/M2, UNK
     Route: 065
     Dates: start: 20080112, end: 20080116
  16. CYLOCIDE [Concomitant]
     Dosage: 200 MG/M2, UNK
     Route: 065
     Dates: start: 20080112, end: 20080116

REACTIONS (3)
  - ACUTE MYELOID LEUKAEMIA [None]
  - FEBRILE NEUTROPENIA [None]
  - SEPTIC SHOCK [None]
